FAERS Safety Report 7670826-X (Version None)
Quarter: 2011Q3

REPORT INFORMATION
  Report Type: 
  Country: None (occurrence: None)
  Receive Date: 20110809
  Receipt Date: 20110805
  Transmission Date: 20111222
  Serious: Yes (Life-Threatening)
  Sender: FDA-Public Use
  Company Number: RU-US-EMD SERONO, INC.-7034693

PATIENT
  Sex: Female

DRUGS (6)
  1. REBIF [Suspect]
     Indication: MULTIPLE SCLEROSIS
     Route: 058
     Dates: start: 20090501
  2. CEFAZOLIN [Concomitant]
     Indication: APPENDICECTOMY
     Dates: start: 20091001, end: 20091001
  3. CLARITHROMYCIN [Concomitant]
     Indication: ABDOMINAL PAIN
     Dates: start: 20091228
  4. METRONIDASOLI (METRONIDAZOLE) [Concomitant]
     Indication: ABDOMINAL PAIN
     Dates: start: 20091228
  5. NEXIUMI [Concomitant]
     Indication: ABDOMINAL PAIN
     Dates: start: 20091228
  6. CEFAZOLIN [Concomitant]
     Indication: OMENTECTOMY

REACTIONS (1)
  - HYPERSENSITIVITY [None]
